FAERS Safety Report 9953809 (Version 1)
Quarter: 2014Q1

REPORT INFORMATION
  Report Type: Spontaneous
  Country: US (occurrence: US)
  Receive Date: 20140304
  Receipt Date: 20140304
  Transmission Date: 20141002
  Serious: Yes (Other)
  Sender: FDA-Public Use
  Company Number: PHEH2014US004211

PATIENT
  Sex: Female

DRUGS (1)
  1. FOCALIN [Suspect]
     Dosage: UNK UKN, UNK

REACTIONS (5)
  - Glucose tolerance impaired [Unknown]
  - Blood glucose fluctuation [Unknown]
  - Muscle atrophy [Unknown]
  - Decreased appetite [Unknown]
  - Weight decreased [Unknown]
